FAERS Safety Report 14484527 (Version 1)
Quarter: 2018Q1

REPORT INFORMATION
  Report Type: Spontaneous
  Country: US (occurrence: US)
  Receive Date: 20180202
  Receipt Date: 20180202
  Transmission Date: 20180509
  Serious: Yes (Other)
  Sender: FDA-Public Use
  Company Number: None

PATIENT
  Age: 54 Year
  Sex: Male
  Weight: 70.9 kg

DRUGS (2)
  1. CEFEPIME [Suspect]
     Active Substance: CEFEPIME HYDROCHLORIDE
     Indication: PNEUMONIA
     Dosage: OTHER FREQUENCY:ONCE AND Q8H;OTHER ROUTE:IV PUSH OVER 5 MINUTES (IN 10 ML SWFI)?
     Route: 042
     Dates: start: 20171110, end: 20171113
  2. URSODIOL. [Concomitant]
     Active Substance: URSODIOL

REACTIONS (1)
  - Chills [None]

NARRATIVE: CASE EVENT DATE: 20171110
